FAERS Safety Report 8136903-4 (Version None)
Quarter: 2012Q1

REPORT INFORMATION
  Report Type: 
  Country: None (occurrence: None)
  Receive Date: 20120214
  Receipt Date: 20120207
  Transmission Date: 20120608
  Serious: Yes (Other)
  Sender: FDA-Public Use
  Company Number: GB-ASTRAZENECA-2012SE00581

PATIENT
  Age: 65 Year
  Sex: Female

DRUGS (15)
  1. SEROQUEL [Suspect]
     Route: 048
  2. VERAPAMIL [Concomitant]
     Indication: HYPERTENSION
  3. ATIVAN [Concomitant]
     Dosage: 1X3 A DAY AS NEEDED
  4. SPIRONOLACT [Concomitant]
  5. CALCIUM CITRATE W VIT D [Concomitant]
     Dosage: 1000 IU VIT D/260 MG CALCIUM 4 TABLET PER DAY
  6. BENADRYL [Concomitant]
  7. ZOLOFT [Concomitant]
  8. PRAVASTATIN [Concomitant]
  9. OXYBUTYNIN [Concomitant]
  10. PRILOSEC OTC [Concomitant]
  11. SUPER B COMPLEX [Concomitant]
     Dosage: ONCE A DAY, OTC
  12. AMBIEN [Concomitant]
     Dosage: 1 TABLET AT BEDTIME AS NEEDED
  13. ATENOLOL [Concomitant]
     Indication: HYPERTENSION
  14. PHENERGAN [Concomitant]
     Dosage: EVERY SIX HOURS AS NEEDED
  15. ACETAMINOPHEN AND HYDROCODONE BITARTRATE [Concomitant]
     Dosage: 10-500 MG 1 TABLET EVERY FOUR HOUR AS NEEDED

REACTIONS (9)
  - NERVOUSNESS [None]
  - THINKING ABNORMAL [None]
  - STRESS [None]
  - DRUG DOSE OMISSION [None]
  - BREAST CANCER [None]
  - CONDITION AGGRAVATED [None]
  - MENTAL DISORDER [None]
  - ACTIVITIES OF DAILY LIVING IMPAIRED [None]
  - FEELING OF DESPAIR [None]
